FAERS Safety Report 8362621-3 (Version None)
Quarter: 2012Q2

REPORT INFORMATION
  Report Type: 
  Country: None (occurrence: None)
  Receive Date: 20120516
  Receipt Date: 20120510
  Transmission Date: 20120825
  Serious: Yes (Other)
  Sender: FDA-Public Use
  Company Number: US-PFIZER INC-2012045401

PATIENT
  Sex: Male

DRUGS (6)
  1. LISINOPRIL [Concomitant]
     Indication: HYPERTENSION
     Dosage: UNK
     Dates: start: 20081201
  2. CHANTIX [Suspect]
     Indication: SMOKING CESSATION THERAPY
     Dosage: UNK
     Dates: start: 20090501, end: 20090801
  3. OMEPRAZOLE [Concomitant]
     Indication: GASTROOESOPHAGEAL REFLUX DISEASE
     Dosage: UNK
     Dates: start: 19920101
  4. ZETIA [Concomitant]
     Indication: BLOOD CHOLESTEROL INCREASED
     Dosage: UNK
     Dates: start: 20040501
  5. FENTANYL [Concomitant]
     Indication: ANALGESIC THERAPY
     Dosage: UNK
     Dates: start: 20080301, end: 20110101
  6. PRAVASTATIN [Concomitant]
     Indication: BLOOD CHOLESTEROL INCREASED
     Dosage: UNK
     Dates: start: 20040501

REACTIONS (10)
  - DEPRESSION [None]
  - ANXIETY [None]
  - AMNESIA [None]
  - ANGER [None]
  - INSOMNIA [None]
  - SUICIDAL IDEATION [None]
  - ABNORMAL DREAMS [None]
  - HOMICIDAL IDEATION [None]
  - AGGRESSION [None]
  - PANIC ATTACK [None]
